FAERS Safety Report 26218966 (Version 1)
Quarter: 2025Q4

REPORT INFORMATION
  Report Type: Spontaneous
  Country: US (occurrence: US)
  Receive Date: 20251231
  Receipt Date: 20251231
  Transmission Date: 20260117
  Serious: Yes (Other)
  Sender: NOVO NORDISK
  Company Number: US-NOVOPROD-1595986

PATIENT
  Age: 62 Year
  Sex: Male

DRUGS (1)
  1. VICTOZA [Suspect]
     Active Substance: LIRAGLUTIDE
     Indication: Diabetes mellitus
     Dosage: UNK

REACTIONS (5)
  - Inguinal hernia repair [Unknown]
  - Umbilical hernia repair [Unknown]
  - Cardiac ablation [Unknown]
  - Cardiac ablation [Unknown]
  - Left atrial appendage closure implant [Unknown]

NARRATIVE: CASE EVENT DATE: 20210106
